FAERS Safety Report 4683119-X (Version None)
Quarter: 2005Q2

REPORT INFORMATION
  Report Type: 
  Country: None (occurrence: None)
  Receive Date: 20050602
  Receipt Date: 20050329
  Transmission Date: 20051028
  Serious: No
  Sender: FDA-Public Use
  Company Number: USA050394359

PATIENT
  Age: 37 Year
  Sex: Male

DRUGS (5)
  1. CYMBALTA [Suspect]
     Indication: DEPRESSION
     Dosage: 60 MG DAY
     Dates: start: 20050315
  2. LORAZEPAM [Concomitant]
  3. THIAMINE [Concomitant]
  4. PROTONIX [Concomitant]
  5. MULTI-VITAMINS [Concomitant]

REACTIONS (1)
  - DRUG SCREEN POSITIVE [None]
